FAERS Safety Report 8823096 (Version 1)
Quarter: 2012Q4

REPORT INFORMATION
  Report Type: 
  Country: US (occurrence: US)
  Receive Date: 20121003
  Receipt Date: 20121003
  Transmission Date: 20130627
  Serious: Yes (Other)
  Sender: FDA-Public Use
  Company Number: US-TEVA-362225USA

PATIENT
  Sex: Female

DRUGS (1)
  1. RANITIDINE [Suspect]

REACTIONS (5)
  - Myocardial infarction [Unknown]
  - Nausea [Unknown]
  - Chills [Unknown]
  - Dizziness [Unknown]
  - Dyspnoea [Unknown]
